FAERS Safety Report 5758917-1 (Version None)
Quarter: 2008Q2

REPORT INFORMATION
  Report Type: 
  Country: None (occurrence: None)
  Receive Date: 20080604
  Receipt Date: 20080529
  Transmission Date: 20081010
  Serious: Yes (Hospitalization)
  Sender: FDA-Public Use
  Company Number: US-BAYER-200812081BCC

PATIENT
  Age: 68 Year
  Sex: Female
  Weight: 57 kg

DRUGS (1)
  1. ASPIRIN [Suspect]
     Indication: PAIN
     Dosage: AS USED: 1 DF  UNIT DOSE: 1 DF
     Route: 048
     Dates: start: 20030101

REACTIONS (3)
  - ABDOMINAL PAIN UPPER [None]
  - EROSIVE OESOPHAGITIS [None]
  - GASTROOESOPHAGEAL REFLUX DISEASE [None]
